FAERS Safety Report 21926529 (Version 1)
Quarter: 2023Q1

REPORT INFORMATION
  Report Type: Spontaneous
  Country: DE (occurrence: DE)
  Receive Date: 20230130
  Receipt Date: 20230130
  Transmission Date: 20230417
  Serious: Yes (Life-Threatening, Other)
  Sender: FDA-Public Use
  Company Number: DE-PFIZER INC-PV202300016568

PATIENT
  Age: 77 Year
  Sex: Male

DRUGS (6)
  1. METHOTREXATE SODIUM [Suspect]
     Active Substance: METHOTREXATE SODIUM
     Indication: Mantle cell lymphoma
     Dosage: UNK, 2X/WEEK (8 I.TH. APPLICATIONS EVERY SECOND DAY)
     Route: 037
     Dates: start: 20181130, end: 20190215
  2. RITUXIMAB [Suspect]
     Active Substance: RITUXIMAB
     Indication: Mantle cell lymphoma
     Dosage: UNK, CYCLIC
  3. TEMSIROLIMUS [Suspect]
     Active Substance: TEMSIROLIMUS
     Indication: Mantle cell lymphoma
     Dosage: 120 MG, CYCLIC
     Route: 042
  4. CYTARABINE [Suspect]
     Active Substance: CYTARABINE
     Indication: Mantle cell lymphoma
     Dosage: UNK, 2X/WEEK (8 I.TH. APPLICATIONS EVERY SECOND DAY)
     Route: 037
     Dates: start: 20181130, end: 20190215
  5. DEXAMETHASONE [Suspect]
     Active Substance: DEXAMETHASONE
     Indication: Mantle cell lymphoma
     Dosage: UNK, 2X/WEEK (8 I.TH. APPLICATIONS EVERY SECOND DAY)
     Route: 037
     Dates: start: 20181130, end: 20190215
  6. BENDAMUSTINE [Concomitant]
     Active Substance: BENDAMUSTINE
     Indication: Mantle cell lymphoma
     Dosage: UNK

REACTIONS (1)
  - Myelosuppression [Unknown]
